FAERS Safety Report 6212318-0 (Version None)
Quarter: 2009Q2

REPORT INFORMATION
  Report Type: 
  Country: None (occurrence: None)
  Receive Date: 20090529
  Receipt Date: 20090519
  Transmission Date: 20091009
  Serious: Yes (Other)
  Sender: FDA-Public Use
  Company Number: 8025648

PATIENT
  Age: 55 Year
  Sex: Female
  Weight: 85.7 kg

DRUGS (4)
  1. CERTOLIZUMAB PEGOL [Suspect]
     Indication: RHEUMATOID ARTHRITIS
     Dosage: 400 MG 1/2W SC
     Route: 058
     Dates: start: 20050803, end: 20060719
  2. CERTOLIZUMAB PEGOL [Suspect]
     Indication: RHEUMATOID ARTHRITIS
     Dosage: 400 MG 1/2W SC
     Route: 058
     Dates: start: 20060802, end: 20070716
  3. PREDNISOLONE [Concomitant]
  4. URSODIOL [Concomitant]

REACTIONS (4)
  - PLEURAL ADHESION [None]
  - PLEURISY [None]
  - PULMONARY FIBROSIS [None]
  - PULMONARY TUBERCULOSIS [None]
